FAERS Safety Report 14804296 (Version 1)
Quarter: 2018Q2

REPORT INFORMATION
  Report Type: Spontaneous
  Country: GB (occurrence: GB)
  Receive Date: 20180425
  Receipt Date: 20180425
  Transmission Date: 20180711
  Serious: Yes (Other)
  Sender: FDA-Public Use
  Company Number: GB-009507513-1804GBR008703

PATIENT
  Age: 21 Year
  Sex: Female
  Weight: 57.6 kg

DRUGS (11)
  1. METHYLPHENIDATE HYDROCHLORIDE. [Concomitant]
     Active Substance: METHYLPHENIDATE HYDROCHLORIDE
     Dosage: 108 MG, QD
  2. VITAMIN D [Concomitant]
     Active Substance: CHOLECALCIFEROL
     Dosage: 3 DF, QD
     Route: 048
  3. FEXOFENADINE HYDROCHLORIDE. [Concomitant]
     Active Substance: FEXOFENADINE HYDROCHLORIDE
     Dosage: 180 MG, QD
     Route: 048
  4. BISACODYL. [Concomitant]
     Active Substance: BISACODYL
     Dosage: 5 MG, 1-2 AT NIGHT
  5. BETAMETHASONE DIPROPIONATE. [Concomitant]
     Active Substance: BETAMETHASONE DIPROPIONATE
     Dosage: 0.1 %, UNK
     Route: 061
  6. EXVIERA [Suspect]
     Active Substance: DASABUVIR
     Indication: CHRONIC HEPATITIS C
     Dosage: 2 DF, QD
     Route: 048
     Dates: start: 20171007, end: 20171230
  7. VIEKIRAX [Suspect]
     Active Substance: OMBITASVIR\PARITAPREVIR\RITONAVIR
     Indication: CHRONIC HEPATITIS C
     Dosage: 2 DF, QD; EXVIERA X1 TWICE A DAY.
     Route: 048
     Dates: start: 20171007, end: 20171230
  8. CYCLIZINE [Concomitant]
     Active Substance: CYCLIZINE
     Dosage: 150 MG, QD
  9. ALBUTEROL. [Concomitant]
     Active Substance: ALBUTEROL
     Dosage: UNK
  10. RIBAVIRIN. [Suspect]
     Active Substance: RIBAVIRIN
     Indication: CHRONIC HEPATITIS C
     Dosage: 400 MG, QD; VIEKIRAX X2 DAILY. EXVIERA X1 TWICE A DAY.
     Route: 048
     Dates: start: 20171007, end: 20171230
  11. CROTAMITON [Concomitant]
     Active Substance: CROTAMITON
     Dosage: 10 %, UNK
     Route: 061

REACTIONS (2)
  - Ectopic pregnancy [Unknown]
  - Maternal exposure before pregnancy [Unknown]
